FAERS Safety Report 6685157-4 (Version None)
Quarter: 2010Q2

REPORT INFORMATION
  Report Type: 
  Country: None (occurrence: None)
  Receive Date: 20100416
  Receipt Date: 20100408
  Transmission Date: 20101027
  Serious: Yes (Death)
  Sender: FDA-Public Use
  Company Number: FR-PFIZER INC-2010044299

PATIENT
  Age: 80 Year
  Sex: Male

DRUGS (8)
  1. TAHOR [Suspect]
     Dosage: 10 MG, 1X/DAY
     Route: 048
  2. PREVISCAN [Interacting]
     Dosage: 20 MG, 0.75 DOSE
     Route: 048
  3. VASTAREL [Concomitant]
     Dosage: 20 MG, 3X/DAY
     Route: 048
  4. LASIX [Concomitant]
     Dosage: 20 MG, DAILY
     Route: 048
  5. DIFFU K [Concomitant]
     Dosage: UNK, DAILY
     Route: 048
  6. FOSAMAX [Concomitant]
     Dosage: 70 MG, ONE WEEKLY
     Route: 048
  7. CACIT [Concomitant]
     Dosage: 1000 MG, UNK
     Route: 048
  8. TAMSULOSIN [Concomitant]
     Dosage: 0.4 MG, DAILY DOSE
     Route: 048

REACTIONS (1)
  - GASTROINTESTINAL HAEMORRHAGE [None]
